FAERS Safety Report 19705571 (Version 1)
Quarter: 2021Q3

REPORT INFORMATION
  Report Type: Spontaneous
  Country: US (occurrence: US)
  Receive Date: 20210817
  Receipt Date: 20210817
  Transmission Date: 20211014
  Serious: Yes (Hospitalization)
  Sender: FDA-Public Use
  Company Number: US-ABBVIE-21K-163-4037775-00

PATIENT
  Age: 19 Year
  Sex: Male
  Weight: 122.58 kg

DRUGS (3)
  1. DEPAKOTE ER [Suspect]
     Active Substance: DIVALPROEX SODIUM
     Indication: SCHIZOPHRENIA
     Dosage: SWITCHED TO GENERIC
     Route: 048
     Dates: start: 201808, end: 201912
  2. COVID?19 VACCINE [Concomitant]
     Indication: COVID-19 IMMUNISATION
     Dosage: JOHNSON AND JOHNSON MANUFACTURER
     Route: 030
     Dates: start: 20210402, end: 20210402
  3. DIVALPROEX [Suspect]
     Active Substance: DIVALPROEX SODIUM
     Indication: SCHIZOPHRENIA
     Dosage: ER?MANIC SYMPTOMS CONTROLLED
     Route: 048
     Dates: start: 201912, end: 20210801

REACTIONS (5)
  - Urticaria [Recovered/Resolved]
  - Anaphylactic shock [Recovered/Resolved]
  - Adverse food reaction [Recovered/Resolved]
  - Tongue discomfort [Recovered/Resolved]
  - Dyspepsia [Recovered/Resolved]

NARRATIVE: CASE EVENT DATE: 201808
